FAERS Safety Report 6759503-7 (Version None)
Quarter: 2010Q2

REPORT INFORMATION
  Report Type: 
  Country: None (occurrence: None)
  Receive Date: 20100603
  Receipt Date: 20100521
  Transmission Date: 20101027
  Serious: Yes (Other)
  Sender: FDA-Public Use
  Company Number: VISP-NO-1005S-0253

PATIENT
  Age: 7 Year
  Sex: Male

DRUGS (1)
  1. VISIPAQUE [Suspect]
     Indication: DRUG USE FOR UNKNOWN INDICATION
     Dosage: 30 ML, SINGE DOSE, EXTRAVASATION
     Dates: start: 20100426, end: 20100426

REACTIONS (5)
  - CONTRAST MEDIA REACTION [None]
  - INFUSION SITE ERYTHEMA [None]
  - INFUSION SITE EXTRAVASATION [None]
  - INFUSION SITE INDURATION [None]
  - INFUSION SITE OEDEMA [None]
